FAERS Safety Report 9025201 (Version 2)
Quarter: 2013Q3

REPORT INFORMATION
  Report Type: Spontaneous
  Country: US (occurrence: US)
  Receive Date: 20130122
  Receipt Date: 20130709
  Transmission Date: 20140515
  Serious: Yes (Other)
  Sender: FDA-Public Use
  Company Number: CHPA2013US001061

PATIENT
  Age: 58 Year
  Sex: Female

DRUGS (5)
  1. HABITROL [Suspect]
     Indication: SMOKING CESSATION THERAPY
     Dosage: 21 MG, QD
     Route: 062
     Dates: start: 2012, end: 2012
  2. FIORICET [Concomitant]
     Indication: MIGRAINE
     Dosage: 50 MG, QD PRN
     Dates: start: 1978
  3. LEVOTHYROXINE [Concomitant]
     Indication: THYROID DISORDER
     Dosage: 50 MG, QD
     Dates: start: 2010
  4. TRAZODONE [Concomitant]
     Indication: INSOMNIA
     Dosage: 150 MG, QHS
     Dates: start: 1983
  5. BABY ASPIRIN [Concomitant]
     Dosage: 81 MG, QD
     Dates: start: 1998

REACTIONS (2)
  - Stress [Not Recovered/Not Resolved]
  - Herpes zoster [Recovered/Resolved]
